FAERS Safety Report 25595500 (Version 3)
Quarter: 2025Q4

REPORT INFORMATION
  Report Type: Report from Study
  Country: JP (occurrence: JP)
  Receive Date: 20250723
  Receipt Date: 20251118
  Transmission Date: 20260117
  Serious: Yes (Hospitalization)
  Sender: TAKEDA
  Company Number: JP-TAKEDA-2025TJP006660

PATIENT
  Age: 40 Year
  Sex: Female

DRUGS (3)
  1. LANADELUMAB [Suspect]
     Active Substance: LANADELUMAB
     Indication: Hereditary angioedema
     Dosage: UNK, Q2WEEKS
     Dates: start: 202502, end: 20251014
  2. FIRAZYR [Suspect]
     Active Substance: ICATIBANT ACETATE
     Indication: Hereditary angioedema
     Dosage: UNK
  3. FIRAZYR [Suspect]
     Active Substance: ICATIBANT ACETATE

REACTIONS (11)
  - Hereditary angioedema [Unknown]
  - Abdominal pain [Unknown]
  - Nausea [Unknown]
  - Hereditary angioedema [Unknown]
  - Fatigue [Unknown]
  - Menopausal symptoms [Recovering/Resolving]
  - Injection site pain [Unknown]
  - Skin reaction [Unknown]
  - Nausea [Unknown]
  - Injection site erythema [Unknown]
  - Dizziness [Unknown]
